FAERS Safety Report 6856621-X (Version None)
Quarter: 2010Q3

REPORT INFORMATION
  Report Type: 
  Country: None (occurrence: None)
  Receive Date: 20100719
  Receipt Date: 20100701
  Transmission Date: 20110219
  Serious: Yes (Other)
  Sender: FDA-Public Use
  Company Number: DE-ROCHE-715641

PATIENT

DRUGS (1)
  1. BEVACIZUMAB [Suspect]
     Dosage: PATIENTS RECEIVED 1.5MG/0.05ML
     Route: 031

REACTIONS (1)
  - CATARACT [None]
